FAERS Safety Report 24083617 (Version 1)
Quarter: 2024Q3

REPORT INFORMATION
  Report Type: Spontaneous
  Country: GB (occurrence: GB)
  Receive Date: 20240712
  Receipt Date: 20240712
  Transmission Date: 20241017
  Serious: Yes (Other)
  Sender: RANBAXY
  Company Number: GB-MHRA-30925142

PATIENT
  Age: 73 Year
  Sex: Male

DRUGS (1)
  1. TAMSULOSIN [Suspect]
     Active Substance: TAMSULOSIN
     Indication: Product used for unknown indication
     Dosage: 400 MCG, DAILY
     Route: 048

REACTIONS (4)
  - Hypotension [Recovering/Resolving]
  - Nausea [Unknown]
  - Dizziness [Recovering/Resolving]
  - Palpitations [Recovering/Resolving]
